FAERS Safety Report 18185976 (Version 3)
Quarter: 2020Q3

REPORT INFORMATION
  Report Type: Report from Study
  Country: DE (occurrence: DE)
  Receive Date: 20200824
  Receipt Date: 20200904
  Transmission Date: 20201103
  Serious: Yes (Hospitalization)
  Sender: FDA-Public Use
  Company Number: PHHO2017DE014460

PATIENT
  Age: 69 Year
  Sex: Male
  Weight: 79 kg

DRUGS (2)
  1. PDR001 [Suspect]
     Active Substance: SPARTALIZUMAB
     Indication: HEPATOCELLULAR CARCINOMA
     Dosage: 300 MG, Q3W
     Route: 042
     Dates: start: 20170725
  2. CAPMATINIB [Suspect]
     Active Substance: CAPMATINIB
     Indication: HEPATOCELLULAR CARCINOMA
     Dosage: 400 MG, BID
     Route: 048
     Dates: start: 20170725

REACTIONS (1)
  - Immune-mediated hepatitis [Not Recovered/Not Resolved]

NARRATIVE: CASE EVENT DATE: 20170928
